FAERS Safety Report 16446890 (Version 1)
Quarter: 2019Q2

REPORT INFORMATION
  Report Type: Spontaneous
  Country: GB (occurrence: GB)
  Receive Date: 20190618
  Receipt Date: 20190618
  Transmission Date: 20190711
  Serious: Yes (Hospitalization, Other)
  Sender: FDA-Public Use
  Company Number: GB-SA-2019SA161927

PATIENT
  Age: 41 Year
  Sex: Female

DRUGS (2)
  1. LEMTRADA [Suspect]
     Active Substance: ALEMTUZUMAB
     Indication: RELAPSING-REMITTING MULTIPLE SCLEROSIS
     Dosage: FOR 5 DAYS, THEN A YEAR LATER FOR 5 DAYS
     Route: 042
     Dates: start: 20161213
  2. LEMTRADA [Suspect]
     Active Substance: ALEMTUZUMAB
     Dosage: FOR 5 DAYS, THEN A YEAR LATER FOR 5 DAYS
     Route: 042

REACTIONS (1)
  - Evans syndrome [Recovering/Resolving]

NARRATIVE: CASE EVENT DATE: 20190124
